FAERS Safety Report 5343413-6 (Version None)
Quarter: 2007Q2

REPORT INFORMATION
  Report Type: 
  Country: None (occurrence: None)
  Receive Date: 20070531
  Receipt Date: 20070516
  Transmission Date: 20071010
  Serious: Yes (Hospitalization)
  Sender: FDA-Public Use
  Company Number: 100#08#2007-01728

PATIENT
  Age: 32 Year
  Sex: Male

DRUGS (7)
  1. AMITRIPTLINE HCL [Suspect]
     Indication: DRUG USE FOR UNKNOWN INDICATION
     Dosage: 8X25 MG (AT ONCE), ORAL
     Route: 048
  2. CARBOMIX (CHARCOAL, ACTIVATED) (CHARCOAL ACTIVATED) [Suspect]
     Dosage: 50 G + 300 G IN THE NEXT 36 HOURS
  3. CHLORPROMAZINE [Suspect]
     Indication: DRUG USE FOR UNKNOWN INDICATION
     Dosage: 50X50 MG
  4. TRIFLUOPERAZINE (TRIFLUOPERAZINE) (TRIFLUOPERAZINE) [Concomitant]
  5. TEMAZEPAM [Concomitant]
  6. DORBANEX (DORBANEX) (DANTHRON) [Concomitant]
  7. PICOLAX (SODIUM PICOSULFATE) (SODIUM PICOSULPHATE) [Concomitant]

REACTIONS (9)
  - COLONIC OBSTRUCTION [None]
  - CONSTIPATION [None]
  - DIARRHOEA [None]
  - DISCOMFORT [None]
  - DRUG INEFFECTIVE [None]
  - FAECALOMA [None]
  - LOSS OF CONSCIOUSNESS [None]
  - MULTIPLE DRUG OVERDOSE INTENTIONAL [None]
  - SUICIDE ATTEMPT [None]
